FAERS Safety Report 9460846 (Version 1)
Quarter: 2013Q3

REPORT INFORMATION
  Report Type: Report from Study
  Country: US (occurrence: US)
  Receive Date: 20130816
  Receipt Date: 20130816
  Transmission Date: 20140515
  Serious: Yes (Other)
  Sender: FDA-Public Use
  Company Number: US-ABBOTT-13P-163-1130794-00

PATIENT
  Age: 31 Year
  Sex: Female

DRUGS (1)
  1. HUMIRA [Suspect]
     Indication: CROHN^S DISEASE
     Dates: start: 201303, end: 201307

REACTIONS (3)
  - Pouchitis [Recovered/Resolved]
  - Crohn^s disease [Recovered/Resolved]
  - Drug ineffective [Unknown]
